FAERS Safety Report 11169524 (Version 1)
Quarter: 2015Q2

REPORT INFORMATION
  Report Type: Spontaneous
  Country: DE (occurrence: DE)
  Receive Date: 20150605
  Receipt Date: 20150605
  Transmission Date: 20150821
  Serious: Yes (Life-Threatening, Hospitalization)
  Sender: FDA-Public Use
  Company Number: DE-ASTRAZENECA-2015SE54450

PATIENT
  Age: 29 Year
  Sex: Female

DRUGS (1)
  1. QUETIAPINE XR [Suspect]
     Active Substance: QUETIAPINE
     Route: 048

REACTIONS (9)
  - Blood pressure decreased [Unknown]
  - Tachycardia [Unknown]
  - Toxicity to various agents [Recovered/Resolved]
  - Seizure [Unknown]
  - Coma [Unknown]
  - Exposure during pregnancy [Unknown]
  - Somnolence [Unknown]
  - Suicide attempt [Unknown]
  - Intentional product misuse [Unknown]
